FAERS Safety Report 19985898 (Version 1)
Quarter: 2021Q4

REPORT INFORMATION
  Report Type: Report from Study
  Country: JP (occurrence: JP)
  Receive Date: 20211022
  Receipt Date: 20211022
  Transmission Date: 20220303
  Serious: Yes (Other)
  Sender: FDA-Public Use
  Company Number: JP-MYLANLABS-2021M1074826

PATIENT
  Age: 19 Year
  Sex: Female

DRUGS (4)
  1. PIPERACILLIN SODIUM\TAZOBACTAM SODIUM [Suspect]
     Active Substance: PIPERACILLIN SODIUM\TAZOBACTAM SODIUM
     Indication: Febrile neutropenia
     Route: 065
  2. MEROPENEM [Suspect]
     Active Substance: MEROPENEM
     Indication: Febrile neutropenia
     Dosage: 120 MILLIGRAM/KILOGRAM, QD, (MAXIMUM DOSE: 3 G/DAY) 1H DRIP INFUSION THREE TIMES A DAY, PATIENT ROUT
     Route: 065
  3. VENOGLOBULIN IH [Suspect]
     Active Substance: HUMAN IMMUNOGLOBULIN G
     Indication: Febrile neutropenia
     Dosage: 100 MILLIGRAM/KILOGRAM, QD, (MAXIMUM DOSE: 5 G/DAY)
     Route: 042
  4. VORICONAZOLE [Concomitant]
     Active Substance: VORICONAZOLE
     Indication: Antifungal prophylaxis
     Dosage: 10 MILLIGRAM/KILOGRAM, QD, DIVIDED INTO TWO ORAL DOSES (MAXIMAL DOSE, 400 MG/DAY)
     Route: 048

REACTIONS (1)
  - Treatment failure [Unknown]
